FAERS Safety Report 4891542-3 (Version None)
Quarter: 2006Q1

REPORT INFORMATION
  Report Type: 
  Country: None (occurrence: None)
  Receive Date: 20060125
  Receipt Date: 20051003
  Transmission Date: 20060701
  Serious: Yes (Hospitalization, Disabling, Other)
  Sender: FDA-Public Use
  Company Number: US-MERCK-0510USA02493

PATIENT
  Age: 42 Year
  Sex: Male
  Weight: 82 kg

DRUGS (2)
  1. VIOXX [Suspect]
     Indication: MUSCLE SPASMS
     Route: 048
  2. PERCOCET [Concomitant]
     Route: 065

REACTIONS (6)
  - CARDIAC DISORDER [None]
  - CARDIAC VALVE DISEASE [None]
  - CHEMICAL POISONING [None]
  - EMOTIONAL DISTRESS [None]
  - MENTAL DISORDER [None]
  - MYOCARDIAL INFARCTION [None]
